FAERS Safety Report 19908436 (Version 2)
Quarter: 2022Q2

REPORT INFORMATION
  Report Type: Report from Study
  Country: CO (occurrence: CO)
  Receive Date: 20211001
  Receipt Date: 20220627
  Transmission Date: 20220721
  Serious: Yes (Hospitalization, Other)
  Sender: FDA-Public Use
  Company Number: CO-ABBVIE-21K-036-4048182-00

PATIENT
  Sex: Female
  Weight: 69 kg

DRUGS (4)
  1. HUMIRA [Suspect]
     Active Substance: ADALIMUMAB
     Indication: Rheumatoid arthritis
     Route: 058
     Dates: start: 20141025
  2. HUMIRA [Suspect]
     Active Substance: ADALIMUMAB
     Indication: Rheumatoid arthritis
     Route: 058
     Dates: end: 20210820
  3. HUMIRA [Suspect]
     Active Substance: ADALIMUMAB
     Route: 058
  4. CALCITRIOL [Suspect]
     Active Substance: CALCITRIOL
     Indication: Rheumatoid arthritis
     Route: 048

REACTIONS (18)
  - Cardiac disorder [Recovering/Resolving]
  - Pulmonary infarction [Recovering/Resolving]
  - Pulmonary necrosis [Recovering/Resolving]
  - Vascular calcification [Recovering/Resolving]
  - Thrombosis [Recovering/Resolving]
  - Pneumonitis [Recovering/Resolving]
  - Pulmonary embolism [Recovering/Resolving]
  - Joint swelling [Recovering/Resolving]
  - Gastritis [Not Recovered/Not Resolved]
  - Gastrooesophageal reflux disease [Not Recovered/Not Resolved]
  - Insomnia [Recovering/Resolving]
  - Cholelithiasis [Recovering/Resolving]
  - Pyrexia [Not Recovered/Not Resolved]
  - Arthralgia [Recovering/Resolving]
  - Peripheral swelling [Recovering/Resolving]
  - Limb discomfort [Recovering/Resolving]
  - Breast pain [Not Recovered/Not Resolved]
  - Pain [Recovering/Resolving]

NARRATIVE: CASE EVENT DATE: 20210101
